FAERS Safety Report 6633032-3 (Version None)
Quarter: 2010Q2

REPORT INFORMATION
  Report Type: 
  Country: None (occurrence: None)
  Receive Date: 20100312
  Receipt Date: 20100301
  Transmission Date: 20101027
  Serious: Yes (Other)
  Sender: FDA-Public Use
  Company Number: PHHY2010BR13112

PATIENT
  Sex: Female

DRUGS (3)
  1. EXFORGE [Suspect]
     Indication: HYPERTENSION
     Dosage: 1 TABLET (160/5) IN MORNING
     Dates: start: 20090601
  2. CARBAMAZEPINE [Concomitant]
     Indication: TRIGEMINAL NEURALGIA
     Dosage: 200 MG ( 1 TABLET 3 TIMES DAILY)
     Route: 048
  3. CALCIUM D3 [Concomitant]
     Dosage: 600 MG (1 TABLET DAILY IN ALTERNATE DAYS)

REACTIONS (3)
  - BLOOD PRESSURE INCREASED [None]
  - INSOMNIA [None]
  - OSTEOPOROSIS [None]
